FAERS Safety Report 5874587-6 (Version None)
Quarter: 2008Q3

REPORT INFORMATION
  Report Type: 
  Country: None (occurrence: None)
  Receive Date: 20080905
  Receipt Date: 20080905
  Transmission Date: 20090109
  Serious: Yes (Hospitalization)
  Sender: FDA-Public Use
  Company Number: None

PATIENT
  Age: 61 Year
  Sex: Male
  Weight: 97.9 kg

DRUGS (3)
  1. WARFARIN SODIUM [Suspect]
     Indication: ANTIPHOSPHOLIPID SYNDROME
     Dosage: 2.5 MG HS PO
     Route: 048
     Dates: start: 20000725
  2. WARFARIN SODIUM [Suspect]
     Indication: ATRIAL FLUTTER
     Dosage: 2.5 MG HS PO
     Route: 048
     Dates: start: 20000725
  3. WARFARIN SODIUM [Suspect]
     Indication: PROTEIN C DEFICIENCY
     Dosage: 2.5 MG HS PO
     Route: 048
     Dates: start: 20000725

REACTIONS (5)
  - GASTRIC HAEMORRHAGE [None]
  - HAEMORRHAGE [None]
  - HYPOTENSION [None]
  - HYPOXIA [None]
  - RETROPERITONEAL HAEMATOMA [None]
